FAERS Safety Report 13899504 (Version 2)
Quarter: 2017Q3

REPORT INFORMATION
  Report Type: Spontaneous
  Country: US (occurrence: US)
  Receive Date: 20170824
  Receipt Date: 20170830
  Transmission Date: 20171127
  Serious: No
  Sender: FDA-Public Use
  Company Number: US-PFIZER INC-2017361784

PATIENT
  Age: 40 Year
  Sex: Male

DRUGS (1)
  1. INLYTA [Suspect]
     Active Substance: AXITINIB
     Indication: COLORECTAL CANCER
     Dosage: 5 MG, UNK

REACTIONS (1)
  - Product use in unapproved indication [Unknown]
